FAERS Safety Report 10196601 (Version 1)
Quarter: 2014Q2

REPORT INFORMATION
  Report Type: Spontaneous
  Country: US (occurrence: None)
  Receive Date: 20140523
  Receipt Date: 20140523
  Transmission Date: 20141212
  Serious: Yes (Hospitalization)
  Sender: FDA-Public Use
  Company Number: None

PATIENT
  Age: 79 Year
  Sex: Female

DRUGS (10)
  1. PASIREOTIDE [Suspect]
     Indication: THYROID CANCER
     Dosage: 4MG ?Q4WKS
     Dates: start: 20130619, end: 20140507
  2. EVEROLIMUS [Suspect]
     Indication: THYROID CANCER
     Dates: start: 20130619, end: 20140507
  3. CALCIUM [Concomitant]
  4. CIPRO [Concomitant]
  5. IMODIUM A-D [Concomitant]
  6. KLOR-CON [Concomitant]
  7. ASPIRIN [Concomitant]
  8. BISPROLOL-HYDROCHLOROTHIAZIDE [Concomitant]
  9. LOVASTATIN [Concomitant]
  10. MAGNESIUM CITRATE [Concomitant]

REACTIONS (3)
  - Back pain [None]
  - Lumbar vertebral fracture [None]
  - Compression fracture [None]
